FAERS Safety Report 19238502 (Version 1)
Quarter: 2021Q2

REPORT INFORMATION
  Report Type: Report from Study
  Country: IT (occurrence: IT)
  Receive Date: 20210510
  Receipt Date: 20210510
  Transmission Date: 20210717
  Serious: Yes (Death, Hospitalization)
  Sender: FDA-Public Use
  Company Number: IT-TAKEDA-2021TUS027834

PATIENT
  Sex: Male

DRUGS (1)
  1. HUMAN IMMUNOGLOBULIN; HYALURONIDASE [Suspect]
     Active Substance: HUMAN IMMUNOGLOBULIN G\HYALURONIDASE RECOMBINANT HUMAN
     Indication: PLASMA CELL MYELOMA
     Dosage: 30 GRAM, MONTHLY
     Route: 058
     Dates: start: 20210420, end: 20210420

REACTIONS (3)
  - Condition aggravated [Fatal]
  - General physical health deterioration [Fatal]
  - Generalised oedema [Fatal]

NARRATIVE: CASE EVENT DATE: 20210427
